FAERS Safety Report 8976206 (Version 3)
Quarter: 2016Q4

REPORT INFORMATION
  Report Type: Spontaneous
  Country: FR (occurrence: FR)
  Receive Date: 20121220
  Receipt Date: 20161230
  Transmission Date: 20170207
  Serious: Yes (Hospitalization)
  Sender: FDA-Public Use
  Company Number: FR-ROCHE-1170294

PATIENT
  Age: 87 Year
  Sex: Female

DRUGS (11)
  1. ROCEPHINE [Suspect]
     Active Substance: CEFTRIAXONE SODIUM
     Indication: PERTUSSIS
     Route: 041
     Dates: start: 20121116, end: 20121119
  2. UVEDOSE [Concomitant]
     Active Substance: CHOLECALCIFEROL
  3. ROCEPHINE [Suspect]
     Active Substance: CEFTRIAXONE SODIUM
     Route: 041
     Dates: start: 20161109, end: 20161110
  4. ZECLAR [Concomitant]
     Active Substance: CLARITHROMYCIN
     Route: 048
     Dates: start: 20121120, end: 20121123
  5. TAVANIC [Concomitant]
     Active Substance: LEVOFLOXACIN
     Route: 065
     Dates: start: 20121119, end: 20121129
  6. LASILIX [Suspect]
     Active Substance: FUROSEMIDE
     Indication: PRODUCT USED FOR UNKNOWN INDICATION
     Route: 042
     Dates: start: 20121116, end: 20121125
  7. KAYEXALATE [Concomitant]
     Active Substance: SODIUM POLYSTYRENE SULFONATE
     Route: 048
     Dates: start: 20121121, end: 20121123
  8. ALDACTONE [Concomitant]
     Active Substance: SPIRONOLACTONE
  9. VIALEBEX [Concomitant]
     Active Substance: ALBUMIN HUMAN
     Route: 065
     Dates: start: 20121121, end: 20121123
  10. ATACAND [Concomitant]
     Active Substance: CANDESARTAN CILEXETIL
  11. SYMBICORT [Concomitant]
     Active Substance: BUDESONIDE\FORMOTEROL FUMARATE DIHYDRATE

REACTIONS (4)
  - Mouth ulceration [Recovering/Resolving]
  - Eosinophilia [Recovered/Resolved]
  - Erythema multiforme [Recovering/Resolving]
  - Blood creatinine increased [Recovered/Resolved]

NARRATIVE: CASE EVENT DATE: 20121119
